FAERS Safety Report 6031710-0 (Version None)
Quarter: 2009Q1

REPORT INFORMATION
  Report Type: 
  Country: None (occurrence: None)
  Receive Date: 20090108
  Receipt Date: 20090107
  Transmission Date: 20090719
  Serious: Yes (Other)
  Sender: FDA-Public Use
  Company Number: B0539143A

PATIENT
  Age: 57 Year
  Sex: Female

DRUGS (1)
  1. AVANDAMET [Suspect]
     Route: 048
     Dates: start: 20070101, end: 20080901

REACTIONS (2)
  - HAEMOGLOBIN DECREASED [None]
  - HYPOCHROMIC ANAEMIA [None]
